FAERS Safety Report 7464899-7 (Version None)
Quarter: 2011Q2

REPORT INFORMATION
  Report Type: 
  Country: None (occurrence: None)
  Receive Date: 20110509
  Receipt Date: 20110107
  Transmission Date: 20111010
  Serious: Yes (Hospitalization, Other)
  Sender: FDA-Public Use
  Company Number: US-BAYER-201024043NA

PATIENT
  Age: 23 Year
  Sex: Female
  Weight: 68.027 kg

DRUGS (9)
  1. VITAMINS [Concomitant]
  2. YASMIN [Suspect]
     Indication: ACNE
     Dosage: UNK
     Route: 048
  3. YAZ [Suspect]
     Dosage: UNK
     Route: 048
     Dates: start: 20061216, end: 20070305
  4. DOXYCYCLINE HYCLATE [Concomitant]
     Dosage: 100 MG, UNK
     Route: 048
     Dates: start: 20080510
  5. FLUCONAZOLE [Concomitant]
     Dosage: 150 MG, UNK
     Route: 048
     Dates: start: 20080116
  6. NAPROXEN [Concomitant]
     Indication: HEADACHE
  7. ADVIL LIQUI-GELS [Concomitant]
     Indication: HEADACHE
  8. PHENOBARBITAL [Concomitant]
     Indication: CONVULSION
     Dosage: UNK
     Dates: start: 20030401
  9. YAZ [Suspect]
     Indication: ACNE
     Dosage: UNK
     Route: 048
     Dates: start: 20061001, end: 20080901

REACTIONS (6)
  - PAIN [None]
  - INJURY [None]
  - BACK PAIN [None]
  - DEEP VEIN THROMBOSIS [None]
  - MUSCULOSKELETAL STIFFNESS [None]
  - OEDEMA PERIPHERAL [None]
